FAERS Safety Report 25652944 (Version 2)
Quarter: 2025Q3

REPORT INFORMATION
  Report Type: Spontaneous
  Country: EU (occurrence: EU)
  Receive Date: 20250807
  Receipt Date: 20250814
  Transmission Date: 20251021
  Serious: No
  Sender: BEIGENE
  Company Number: EU-BEIGENE-BGN-2025-012958

PATIENT

DRUGS (1)
  1. BRUKINSA [Suspect]
     Active Substance: ZANUBRUTINIB
     Indication: Chronic lymphocytic leukaemia

REACTIONS (1)
  - Heavy menstrual bleeding [Unknown]
